FAERS Safety Report 24611350 (Version 1)
Quarter: 2024Q4

REPORT INFORMATION
  Report Type: Spontaneous
  Country: FR (occurrence: FR)
  Receive Date: 20241113
  Receipt Date: 20241113
  Transmission Date: 20250115
  Serious: Yes (Life-Threatening)
  Sender: CHEPLAPHARM
  Company Number: None

PATIENT
  Age: 42 Year
  Sex: Female
  Weight: 65 kg

DRUGS (20)
  1. CLONAZEPAM [Suspect]
     Active Substance: CLONAZEPAM
     Dosage: 1FP?DAILY DOSE: 1 MILLIGRAM
     Route: 042
     Dates: start: 20240910, end: 20240910
  2. BOTOX [Suspect]
     Active Substance: ONABOTULINUMTOXINA
     Indication: Product used for unknown indication
     Dosage: 40 IU / 1FP
     Route: 030
     Dates: start: 20240903, end: 20240903
  3. LEVOFLOXACIN [Suspect]
     Active Substance: LEVOFLOXACIN
     Indication: Pneumonia aspiration
     Dosage: 1FP?DAILY DOSE: 1000 MILLIGRAM
     Route: 042
     Dates: start: 20240906, end: 20240911
  4. SUCCINYLCHOLINE [Suspect]
     Active Substance: SUCCINYLCHOLINE\SUCCINYLCHOLINE CHLORIDE
     Indication: Induction of anaesthesia
     Dosage: 70 MG/1 D?DAILY DOSE: 70 MILLIGRAM
     Route: 042
     Dates: start: 20240903, end: 20240903
  5. ROCURONIUM BROMIDE [Suspect]
     Active Substance: ROCURONIUM BROMIDE
     Indication: Anaesthesia
     Dosage: 1FP?DAILY DOSE: 100 MILLIGRAM
     Route: 042
     Dates: start: 20240904, end: 20240904
  6. MAGNESIUM [Concomitant]
     Active Substance: MAGNESIUM
  7. PRIMPERAN [Concomitant]
     Active Substance: METOCLOPRAMIDE HYDROCHLORIDE
  8. NORMACOL [Concomitant]
     Active Substance: HERBALS\KARAYA GUM
     Dosage: MONOSODIUM PHOSPHATE DIHYDRATE + DISODIUM PHOSPHATE DODECAHYDRATE
  9. ACUPAN [Concomitant]
     Active Substance: NEFOPAM HYDROCHLORIDE
  10. CALCIUM PHOSPHATE, DIBASIC, ANHYDROUS\MAGNESIUM GLYCEROPHOSPHATE\PHOSP [Concomitant]
     Active Substance: CALCIUM PHOSPHATE, DIBASIC, ANHYDROUS\MAGNESIUM GLYCEROPHOSPHATE\PHOSPHORIC ACID\SODIUM PHOSPHATE, D
  11. PANTOPRAZOLE [Concomitant]
     Active Substance: PANTOPRAZOLE
  12. Spasfon [Concomitant]
  13. TRIMEBUTINE [Concomitant]
     Active Substance: TRIMEBUTINE
  14. LEVOTHYROXINE [Concomitant]
     Active Substance: LEVOTHYROXINE
     Dosage: 50 ?G X 1 CP/J
  15. AUGMENTIN [Concomitant]
     Active Substance: AMOXICILLIN\CLAVULANATE POTASSIUM
     Dates: start: 20240905
  16. PIPERACILLIN SODIUM\TAZOBACTAM SODIUM [Concomitant]
     Active Substance: PIPERACILLIN SODIUM\TAZOBACTAM SODIUM
     Dosage: 12:15 PM
  17. AMIKACIN [Concomitant]
     Active Substance: AMIKACIN
  18. BACTRIM [Concomitant]
     Active Substance: SULFAMETHOXAZOLE\TRIMETHOPRIM
     Dosage: 800 MG X 2/DAY
     Dates: start: 20240906
  19. VENTOLIN [Concomitant]
     Active Substance: ALBUTEROL SULFATE
  20. AZITHROMYCIN [Concomitant]
     Active Substance: AZITHROMYCIN
     Indication: Pneumonia

REACTIONS (1)
  - Myasthenia gravis [Not Recovered/Not Resolved]

NARRATIVE: CASE EVENT DATE: 20240911
